FAERS Safety Report 15811800 (Version 2)
Quarter: 2019Q1

REPORT INFORMATION
  Report Type: Spontaneous
  Country: BR (occurrence: BR)
  Receive Date: 20190111
  Receipt Date: 20190211
  Transmission Date: 20190417
  Serious: Yes (Other)
  Sender: FDA-Public Use
  Company Number: PHHY2019BR002105

PATIENT
  Sex: Female
  Weight: 48 kg

DRUGS (2)
  1. LECTRUM [Suspect]
     Active Substance: LEUPROLIDE ACETATE
     Dosage: 7.5 MG, QMO
     Route: 058
  2. LECTRUM [Suspect]
     Active Substance: LEUPROLIDE ACETATE
     Indication: BLOOD GROWTH HORMONE ABNORMAL
     Dosage: 3.75 MG, QMO (1 AMPULE PER MONTH)
     Route: 058
     Dates: start: 20180912

REACTIONS (1)
  - Drug dependence [Unknown]
